FAERS Safety Report 4866970-2 (Version None)
Quarter: 2005Q4

REPORT INFORMATION
  Report Type: 
  Country: None (occurrence: None)
  Receive Date: 20051222
  Receipt Date: 20051212
  Transmission Date: 20060501
  Serious: Yes (Hospitalization)
  Sender: FDA-Public Use
  Company Number: B0403613A

PATIENT
  Age: 46 Year
  Sex: Male

DRUGS (3)
  1. EPIVIR [Suspect]
     Indication: HIV INFECTION
  2. RETROVIR [Suspect]
     Indication: HIV INFECTION
  3. EFAVIRENZ [Suspect]
     Indication: HIV INFECTION

REACTIONS (14)
  - CELLULITIS [None]
  - CONDITION AGGRAVATED [None]
  - DYSPHAGIA [None]
  - DYSPNOEA [None]
  - EPISTAXIS [None]
  - HISTOPLASMOSIS [None]
  - IMMUNE RECONSTITUTION SYNDROME [None]
  - LEISHMANIASIS [None]
  - ODYNOPHAGIA [None]
  - PAIN [None]
  - SCROTAL ULCER [None]
  - SKIN ULCER [None]
  - T-LYMPHOCYTE COUNT DECREASED [None]
  - WEIGHT DECREASED [None]
